APPROVED DRUG PRODUCT: ALUPENT
Active Ingredient: METAPROTERENOL SULFATE
Strength: 0.4%
Dosage Form/Route: SOLUTION;INHALATION
Application: N018761 | Product #002
Applicant: BOEHRINGER INGELHEIM PHARMACEUTICALS INC
Approved: Oct 10, 1986 | RLD: No | RS: No | Type: DISCN